FAERS Safety Report 7198022-3 (Version None)
Quarter: 2010Q4

REPORT INFORMATION
  Report Type: 
  Country: None (occurrence: None)
  Receive Date: 20101227
  Receipt Date: 20101221
  Transmission Date: 20110411
  Serious: Yes (Hospitalization)
  Sender: FDA-Public Use
  Company Number: FR-ROCHE-749355

PATIENT
  Sex: Female

DRUGS (2)
  1. ROCEPHIN [Suspect]
     Indication: ERYSIPELAS
     Route: 065
     Dates: start: 20101121, end: 20101129
  2. PYOSTACINE [Suspect]
     Indication: ERYSIPELAS
     Route: 065
     Dates: start: 20101128, end: 20101129

REACTIONS (1)
  - DERMATITIS EXFOLIATIVE [None]
